FAERS Safety Report 5209633-6 (Version None)
Quarter: 2006Q4

REPORT INFORMATION
  Report Type: 
  Country: None (occurrence: None)
  Receive Date: 20061122
  Receipt Date: 20051026
  Transmission Date: 20070319
  Serious: Yes (Other)
  Sender: FDA-Public Use
  Company Number: 2005137758

PATIENT
  Age: 58 Year
  Sex: Female
  Weight: 68.4932 kg

DRUGS (3)
  1. LIPITOR [Suspect]
     Indication: BLOOD CHOLESTEROL INCREASED
     Dosage: 10 MG (10 MG, 1 IN1 D), UNKNOWN
     Dates: start: 20011105, end: 20050902
  2. SKELAXIN [Suspect]
     Indication: MUSCLE DISORDER
     Dosage: UNKNOWN, (UNKNOWN), UNKNOWN
     Dates: start: 20050101, end: 20050101
  3. IBUPROFEN [Concomitant]

REACTIONS (5)
  - BLOOD CREATININE INCREASED [None]
  - MOVEMENT DISORDER [None]
  - MUSCLE SPASMS [None]
  - MYALGIA [None]
  - STOMACH DISCOMFORT [None]
